FAERS Safety Report 17000912 (Version 1)
Quarter: 2019Q4

REPORT INFORMATION
  Report Type: Spontaneous
  Country: US (occurrence: US)
  Receive Date: 20191106
  Receipt Date: 20191106
  Transmission Date: 20200122
  Serious: No
  Sender: FDA-Public Use
  Company Number: US-GLAXOSMITHKLINE-US2019197258

PATIENT
  Age: 43 Year
  Sex: Female

DRUGS (2)
  1. ABREVA [Suspect]
     Active Substance: DOCOSANOL
     Indication: ORAL HERPES
     Dosage: UNK, 5 TIMES DAILY
     Dates: start: 20191015, end: 20191020
  2. ABREVA [Suspect]
     Active Substance: DOCOSANOL
     Dosage: UNK, 5 TIMES DAILY
     Dates: start: 20191015, end: 20191020

REACTIONS (1)
  - Incorrect product administration duration [Unknown]

NARRATIVE: CASE EVENT DATE: 20191020
